FAERS Safety Report 7610318-7 (Version None)
Quarter: 2011Q3

REPORT INFORMATION
  Report Type: 
  Country: None (occurrence: None)
  Receive Date: 20110706
  Receipt Date: 20110704
  Transmission Date: 20111222
  Serious: Yes (Life-Threatening, Other)
  Sender: FDA-Public Use
  Company Number: SP03295

PATIENT
  Age: 19 Year
  Sex: Male

DRUGS (5)
  1. BRICANYL TERBUHALER (AEROSOL FOR INHALATION) [Concomitant]
  2. BALNEUM (GLYCINE MAX SEED OIL) [Concomitant]
  3. SYMBICORT (AEROSOL FOR INHALATION) [Concomitant]
  4. LORATADINE [Concomitant]
  5. MOVIPREP [Suspect]
     Indication: BOWEL PREPARATION
     Dosage: 250 MILLIGRAM/MILLILITERS, ORAL
     Route: 048
     Dates: start: 20101006, end: 20101006

REACTIONS (1)
  - ANAPHYLACTIC SHOCK [None]
